FAERS Safety Report 18893266 (Version 7)
Quarter: 2021Q1

REPORT INFORMATION
  Report Type: Report from Study
  Country: IL (occurrence: IL)
  Receive Date: 20210215
  Receipt Date: 20210319
  Transmission Date: 20210420
  Serious: Yes (Hospitalization)
  Sender: FDA-Public Use
  Company Number: IL-ROCHE-2762226

PATIENT
  Age: 77 Year
  Sex: Female
  Weight: 73.7 kg

DRUGS (28)
  1. NEXIUM [Concomitant]
     Active Substance: ESOMEPRAZOLE MAGNESIUM
     Indication: GASTRITIS
     Route: 048
     Dates: start: 20201001
  2. PREDNISONE. [Concomitant]
     Active Substance: PREDNISONE
     Route: 048
     Dates: start: 20210115, end: 20210124
  3. ACYCLOVIR. [Concomitant]
     Active Substance: ACYCLOVIR
     Indication: ENCEPHALOPATHY
     Route: 042
     Dates: start: 20210110, end: 20210111
  4. AMPICILLIN [Concomitant]
     Active Substance: AMPICILLIN
     Route: 042
     Dates: start: 20210111, end: 20210111
  5. KEFTRIAXON [Concomitant]
     Indication: ENCEPHALOPATHY
     Route: 042
     Dates: start: 20210110, end: 20210110
  6. MTIG 7192A [Suspect]
     Active Substance: TIRAGOLUMAB
     Indication: HEPATOCELLULAR CARCINOMA
     Dosage: DOSE LAST STUDY DRUG ADMIN PRIOR AE: 600 MG?START DATE OF MOST RECENT DOSE OF STUDY DRUG PRIOR TO AE
     Route: 042
     Dates: start: 20201125
  7. ATEZOLIZUMAB. [Suspect]
     Active Substance: ATEZOLIZUMAB
     Indication: HEPATOCELLULAR CARCINOMA
     Dosage: START DATE OF MOST RECENT DOSE OF STUDY DRUG PRIOR TO AE: 15/DEC/2020?DOSE LAST STUDY DRUG ADMIN PRI
     Route: 041
     Dates: start: 20201125
  8. PREDNISONE. [Concomitant]
     Active Substance: PREDNISONE
     Indication: HEPATIC ENZYME INCREASED
     Route: 048
     Dates: start: 20210105, end: 20210109
  9. DEXAMETAZONA [Concomitant]
     Indication: ENCEPHALOPATHY
     Route: 042
     Dates: start: 20210110, end: 20210111
  10. KONAKION [Concomitant]
     Active Substance: PHYTONADIONE
     Indication: ENCEPHALOPATHY
     Route: 048
     Dates: start: 20210110, end: 20210110
  11. CEFTRIAXONE?VIT [Concomitant]
     Indication: INFECTION
     Route: 042
     Dates: start: 20210124, end: 20210124
  12. PROPANOLOL [Concomitant]
     Active Substance: PROPRANOLOL HYDROCHLORIDE
     Indication: HYPERTENSION
     Route: 048
     Dates: start: 20150501
  13. ACAMOL [Concomitant]
     Active Substance: ACETAMINOPHEN
     Indication: PAIN
     Route: 048
  14. PREDNISONE. [Concomitant]
     Active Substance: PREDNISONE
     Route: 048
     Dates: start: 20210113, end: 20210114
  15. PREDNISONE. [Concomitant]
     Active Substance: PREDNISONE
     Route: 048
     Dates: start: 20210125
  16. AVILAC [Concomitant]
     Indication: HEPATIC ENCEPHALOPATHY
     Route: 048
     Dates: start: 20210123, end: 20210123
  17. HALOPERIDOL. [Concomitant]
     Active Substance: HALOPERIDOL
     Indication: CONFUSIONAL STATE
     Route: 030
     Dates: start: 20210124, end: 20210124
  18. MIDOLAM [Concomitant]
     Indication: SEDATION
     Route: 042
     Dates: start: 20210123, end: 20210123
  19. ALDACTONE [Concomitant]
     Active Substance: SPIRONOLACTONE
     Indication: HYPERTENSION
     Route: 048
     Dates: start: 20201001
  20. CETOMACROGOL [Concomitant]
     Active Substance: COSMETICS
     Indication: LIPOMA
     Route: 061
  21. PREDNISONE. [Concomitant]
     Active Substance: PREDNISONE
     Route: 048
     Dates: start: 20210111, end: 20210112
  22. KEFTRIAXON [Concomitant]
     Indication: INFECTION
     Route: 042
     Dates: start: 20210125, end: 20210125
  23. FUSID (ISRAEL) [Concomitant]
     Indication: HYPERTENSION
     Route: 048
     Dates: start: 202012
  24. SODIUM CHLORIDE. [Concomitant]
     Active Substance: SODIUM CHLORIDE
     Route: 042
     Dates: start: 20210123, end: 20210124
  25. BEVACIZUMAB. [Suspect]
     Active Substance: BEVACIZUMAB
     Indication: HEPATOCELLULAR CARCINOMA
     Dosage: DOSE LAST STUDY DRUG ADMIN PRIOR AE: 1150 MG?START DATE OF MOST RECENT DOSE OF STUDY DRUG PRIOR TO A
     Route: 042
     Dates: start: 20201125
  26. TRAZODIL [Concomitant]
     Indication: CONFUSIONAL STATE
     Route: 048
     Dates: start: 20210124, end: 20210127
  27. AMPICILLIN [Concomitant]
     Active Substance: AMPICILLIN
     Indication: ENCEPHALOPATHY
     Route: 042
     Dates: start: 20210110, end: 20210110
  28. AMLODIPINE [Concomitant]
     Active Substance: AMLODIPINE BESYLATE
     Indication: HYPERTENSION
     Route: 048
     Dates: start: 20210111

REACTIONS (3)
  - Hepatic encephalopathy [Recovered/Resolved with Sequelae]
  - Delirium [Recovered/Resolved with Sequelae]
  - Atrial fibrillation [Not Recovered/Not Resolved]

NARRATIVE: CASE EVENT DATE: 20210131
